FAERS Safety Report 8544340-3 (Version None)
Quarter: 2012Q3

REPORT INFORMATION
  Report Type: 
  Country: None (occurrence: None)
  Receive Date: 20120719
  Receipt Date: 20120719
  Transmission Date: 20120928
  Serious: Yes (Life-Threatening, Hospitalization)
  Sender: FDA-Public Use
  Company Number: None

PATIENT
  Age: 64 Year
  Sex: Male
  Weight: 142 kg

DRUGS (2)
  1. XARELTO [Suspect]
     Indication: ATRIAL FIBRILLATION
     Dosage: 15MG    DAILY  PO
     Route: 048
  2. ASPIRIN [Suspect]
     Dosage: 81MG DAILY PO
     Route: 048

REACTIONS (2)
  - HYPOTENSION [None]
  - SUBDURAL HAEMORRHAGE [None]
